FAERS Safety Report 8990055 (Version 1)
Quarter: 2012Q4

REPORT INFORMATION
  Report Type: 
  Country: PL (occurrence: PL)
  Receive Date: 20121228
  Receipt Date: 20121228
  Transmission Date: 20130627
  Serious: Yes (Hospitalization, Disabling)
  Sender: FDA-Public Use
  Company Number: PHHY2012PL120211

PATIENT
  Age: 63 Year
  Sex: Female

DRUGS (7)
  1. PACLITAXEL [Suspect]
     Indication: OVARIAN CANCER
     Dosage: 315 mg, every 3 weeks
     Route: 042
     Dates: start: 20120313
  2. CARBOPLATIN [Suspect]
     Indication: OVARIAN CANCER
     Dosage: 550 mg, every three weeks
     Route: 042
     Dates: start: 20120313
  3. BEVACIZUMAB [Suspect]
     Indication: OVARIAN CANCER
     Dosage: 1035 mg, every 3 weeks
     Route: 042
     Dates: start: 20120405, end: 20120730
  4. SIMVASTATIN [Concomitant]
     Dosage: 20 mg, UNK
  5. DICLOFENAC [Concomitant]
     Dosage: 50 mg, UNK
     Dates: start: 20120731, end: 20120831
  6. BISOPROLOL FUMARATE [Concomitant]
     Dates: start: 20120926
  7. ACENOCOUMAROL [Concomitant]

REACTIONS (16)
  - Cardiomegaly [Unknown]
  - Left ventricular dysfunction [Unknown]
  - Mitral valve incompetence [Unknown]
  - Tricuspid valve incompetence [Unknown]
  - Left atrial dilatation [Unknown]
  - Right atrial dilatation [Unknown]
  - General physical condition abnormal [Unknown]
  - Thrombocytopenia [Unknown]
  - Pulmonary embolism [Not Recovered/Not Resolved]
  - Fatigue [Unknown]
  - Pulmonary congestion [Unknown]
  - Dyspnoea [Unknown]
  - Cough [Unknown]
  - Cardiac failure congestive [Recovering/Resolving]
  - Cardiac murmur [Unknown]
  - Palpitations [Unknown]
